FAERS Safety Report 8398081-6 (Version None)
Quarter: 2012Q2

REPORT INFORMATION
  Report Type: 
  Country: None (occurrence: None)
  Receive Date: 20120531
  Receipt Date: 20120522
  Transmission Date: 20120825
  Serious: No
  Sender: FDA-Public Use
  Company Number: US-ASTRAZENECA-2011SE41535

PATIENT
  Age: 48 Year
  Sex: Female
  Weight: 67.6 kg

DRUGS (22)
  1. PROTONIX [Concomitant]
  2. CERALAFATE [Concomitant]
  3. KADOR [Concomitant]
  4. ZYRTEC [Concomitant]
     Indication: MULTIPLE ALLERGIES
  5. NEXIUM [Suspect]
     Route: 048
     Dates: start: 20020405
  6. HYDROCLORAZAZIDE [Concomitant]
     Indication: BLOOD PRESSURE
  7. NIZATIDIZINE [Concomitant]
  8. ZOFREN [Concomitant]
  9. PROPO N/APAP [Concomitant]
     Dosage: 100-650
     Dates: start: 20020328
  10. NEXIUM [Suspect]
     Indication: GASTROOESOPHAGEAL REFLUX DISEASE
     Route: 048
  11. NEXIUM [Suspect]
     Route: 048
     Dates: start: 20011201, end: 20030701
  12. CALCIUM CARBONATE [Concomitant]
     Indication: CALCIUM DEFICIENCY
  13. COMPAZINE [Concomitant]
  14. PRILOSEC [Concomitant]
  15. IMITREX [Concomitant]
     Indication: MIGRAINE
  16. OMEGA-3-ACID ETHYL ESTERS [Concomitant]
  17. NEXIUM [Suspect]
     Route: 048
     Dates: start: 20030101, end: 20110101
  18. TOMARADOLE HCL [Concomitant]
  19. PEPCID [Concomitant]
     Dates: start: 20020516
  20. VITAMIN D [Concomitant]
     Indication: VITAMIN D DEFICIENCY
  21. HYDROCLORAZAZIDE [Concomitant]
     Dates: start: 20020516
  22. POTASSIUM CHLORIDE [Concomitant]
     Dates: start: 20020315

REACTIONS (4)
  - VITAMIN D DEFICIENCY [None]
  - CALCIUM DEFICIENCY [None]
  - OSTEOPOROSIS [None]
  - VOMITING [None]
